FAERS Safety Report 8261791-5 (Version None)
Quarter: 2012Q2

REPORT INFORMATION
  Report Type: 
  Country: None (occurrence: None)
  Receive Date: 20120405
  Receipt Date: 20120328
  Transmission Date: 20120825
  Serious: Yes (Other)
  Sender: FDA-Public Use
  Company Number: US-BAYER-2012-030169

PATIENT
  Sex: Female

DRUGS (2)
  1. MIRENA [Suspect]
     Indication: PREMENSTRUAL SYNDROME
     Dosage: 20 MCG/24HR, CONT
  2. MIRENA [Suspect]
     Indication: HAEMOGLOBIN DECREASED
     Dosage: 20 MCG/24HR, CONT
     Dates: start: 20120301

REACTIONS (8)
  - LOSS OF CONSCIOUSNESS [None]
  - POST PROCEDURAL HAEMORRHAGE [None]
  - PELVIC PAIN [None]
  - BACK PAIN [None]
  - DEVICE DIFFICULT TO USE [None]
  - MEDICAL DEVICE PAIN [None]
  - PAIN [None]
  - DEVICE DISLOCATION [None]
